FAERS Safety Report 8155947-X (Version None)
Quarter: 2012Q1

REPORT INFORMATION
  Report Type: 
  Country: None (occurrence: None)
  Receive Date: 20120222
  Receipt Date: 20120221
  Transmission Date: 20120608
  Serious: Yes (Hospitalization, Disabling, Other)
  Sender: FDA-Public Use
  Company Number: US-PFIZER INC-2011170323

PATIENT
  Sex: Female
  Weight: 74.8 kg

DRUGS (2)
  1. GLUCOPHAGE [Concomitant]
     Indication: TYPE 2 DIABETES MELLITUS
     Dosage: 5 MG, UNKNOWN FREQUENCY
     Dates: start: 19951101
  2. PREMPRO [Suspect]
     Indication: HOT FLUSH
     Dosage: UNK
     Route: 048
     Dates: start: 20000901

REACTIONS (5)
  - MEMORY IMPAIRMENT [None]
  - CEREBROVASCULAR ACCIDENT [None]
  - DIABETES MELLITUS [None]
  - PHYSICAL DISABILITY [None]
  - WALKING DISABILITY [None]
